APPROVED DRUG PRODUCT: DILTIAZEM HYDROCHLORIDE
Active Ingredient: DILTIAZEM HYDROCHLORIDE
Strength: 90MG
Dosage Form/Route: CAPSULE, EXTENDED RELEASE;ORAL
Application: A219073 | Product #002 | TE Code: AB1
Applicant: UTOPIC PHARMACEUTICALS INC
Approved: Mar 24, 2025 | RLD: No | RS: No | Type: RX